FAERS Safety Report 8130879-1 (Version None)
Quarter: 2012Q1

REPORT INFORMATION
  Report Type: 
  Country: None (occurrence: None)
  Receive Date: 20120213
  Receipt Date: 20120207
  Transmission Date: 20120608
  Serious: No
  Sender: FDA-Public Use
  Company Number: US-PFIZER INC-2011301158

PATIENT
  Sex: Female
  Weight: 113 kg

DRUGS (4)
  1. FLECTOR [Suspect]
     Indication: MUSCULOSKELETAL DISCOMFORT
  2. FLECTOR [Suspect]
     Indication: ARTHRITIS
     Dosage: EVERY 12 HOURS
     Route: 062
     Dates: start: 20111208
  3. LEFLUNOMIDE [Concomitant]
     Dosage: 20 MG, UNK
  4. OMEPRAZOLE [Concomitant]
     Dosage: 25 MG, UNK

REACTIONS (1)
  - DRUG INEFFECTIVE [None]
